FAERS Safety Report 12081281 (Version 1)
Quarter: 2016Q1

REPORT INFORMATION
  Report Type: Spontaneous
  Country: JP (occurrence: JP)
  Receive Date: 20160216
  Receipt Date: 20160216
  Transmission Date: 20160526
  Serious: Yes (Hospitalization)
  Sender: FDA-Public Use
  Company Number: JP-IPCA LABORATORIES LIMITED-IPC201602-000092

PATIENT
  Age: 35 Year
  Sex: Male

DRUGS (6)
  1. FUROSEMIDE. [Suspect]
     Active Substance: FUROSEMIDE
  2. FUROSEMIDE. [Suspect]
     Active Substance: FUROSEMIDE
  3. LISINOPRIL. [Concomitant]
     Active Substance: LISINOPRIL
  4. SODIUM CHLORIDE. [Suspect]
     Active Substance: SODIUM CHLORIDE
  5. CANDESARTAN [Concomitant]
     Active Substance: CANDESARTAN
  6. FUROSEMIDE. [Suspect]
     Active Substance: FUROSEMIDE

REACTIONS (1)
  - Proteinuria [Recovering/Resolving]
